FAERS Safety Report 6325551-4 (Version None)
Quarter: 2009Q3

REPORT INFORMATION
  Report Type: 
  Country: None (occurrence: None)
  Receive Date: 20090824
  Receipt Date: 20090713
  Transmission Date: 20100115
  Serious: No
  Sender: FDA-Public Use
  Company Number: US-ABBOTT-09P-163-0585199-00

PATIENT
  Sex: Female
  Weight: 69.462 kg

DRUGS (19)
  1. NIASPAN [Suspect]
     Indication: LOW DENSITY LIPOPROTEIN INCREASED
     Dosage: DAILY AT BEDTIME
     Dates: start: 20090701
  2. CELEBREX [Concomitant]
     Indication: DRUG USE FOR UNKNOWN INDICATION
  3. VYTORIN [Concomitant]
     Indication: DRUG USE FOR UNKNOWN INDICATION
  4. TECTURNA [Concomitant]
     Indication: DRUG USE FOR UNKNOWN INDICATION
  5. METOPROLOL [Concomitant]
     Indication: DRUG USE FOR UNKNOWN INDICATION
  6. ASPIRIN [Concomitant]
     Indication: DRUG USE FOR UNKNOWN INDICATION
  7. OMEPRAZOLE [Concomitant]
     Indication: DRUG USE FOR UNKNOWN INDICATION
  8. VERAMST [Concomitant]
     Indication: DRUG USE FOR UNKNOWN INDICATION
  9. ASTELIN [Concomitant]
     Indication: DRUG USE FOR UNKNOWN INDICATION
  10. ROPINIROLE [Concomitant]
     Indication: DRUG USE FOR UNKNOWN INDICATION
  11. LYRICA [Concomitant]
     Indication: DRUG USE FOR UNKNOWN INDICATION
  12. TEMAZEPAM [Concomitant]
     Indication: DRUG USE FOR UNKNOWN INDICATION
  13. HELIOCARE [Concomitant]
     Indication: DRUG USE FOR UNKNOWN INDICATION
  14. BETA CAROTENE [Concomitant]
     Indication: DRUG USE FOR UNKNOWN INDICATION
  15. CALCIUM [Concomitant]
     Indication: DRUG USE FOR UNKNOWN INDICATION
  16. CENTRUM SILVER [Concomitant]
     Indication: DRUG USE FOR UNKNOWN INDICATION
  17. FIBER CHOICE [Concomitant]
     Indication: DRUG USE FOR UNKNOWN INDICATION
  18. ASCORBIC ACID [Concomitant]
     Indication: DRUG USE FOR UNKNOWN INDICATION
  19. MOTILIUM [Concomitant]
     Indication: DRUG USE FOR UNKNOWN INDICATION

REACTIONS (1)
  - DIZZINESS [None]
